FAERS Safety Report 5029145-2 (Version None)
Quarter: 2006Q2

REPORT INFORMATION
  Report Type: 
  Country: None (occurrence: None)
  Receive Date: 20060613
  Receipt Date: 20060601
  Transmission Date: 20061013
  Serious: Yes (Life-Threatening, Hospitalization)
  Sender: FDA-Public Use
  Company Number: 2006-05-1996

PATIENT
  Age: 69 Year
  Sex: Male
  Weight: 72 kg

DRUGS (2)
  1. PEG-INTRON [Suspect]
     Indication: HEPATITIS C
     Dosage: 80-60 MCG, QW; SUBCUTANEOUS (SEE IMAGE)
     Route: 058
     Dates: start: 20060411, end: 20060510
  2. REBETOL [Suspect]
     Indication: HEPATITIS C
     Dosage: 800 MG; ORAL
     Route: 048
     Dates: start: 20060411, end: 20060510

REACTIONS (1)
  - AGRANULOCYTOSIS [None]
